FAERS Safety Report 14617504 (Version 1)
Quarter: 2018Q1

REPORT INFORMATION
  Report Type: Spontaneous
  Country: KR (occurrence: KR)
  Receive Date: 20180309
  Receipt Date: 20180309
  Transmission Date: 20180509
  Serious: Yes (Other)
  Sender: FDA-Public Use
  Company Number: KR-ASTRAZENECA-2018SE29297

PATIENT
  Age: 65 Year
  Sex: Male

DRUGS (11)
  1. SIGMART [Concomitant]
     Active Substance: NICORANDIL
  2. BRILINTA [Suspect]
     Active Substance: TICAGRELOR
     Route: 048
  3. CRESTOR [Suspect]
     Active Substance: ROSUVASTATIN CALCIUM
     Route: 048
  4. AMARYL [Concomitant]
     Active Substance: GLIMEPIRIDE
  5. DILATREND SR [Concomitant]
  6. VASTINAN MR [Concomitant]
  7. GLUPA [Concomitant]
     Active Substance: METFORMIN HYDROCHLORIDE
  8. PLAVITOR [Concomitant]
  9. CILOSTAZOL. [Concomitant]
     Active Substance: CILOSTAZOL
  10. ASPIRIN. [Concomitant]
     Active Substance: ASPIRIN
     Dosage: 100MG
  11. FIMASARTAN [Concomitant]
     Active Substance: FIMASARTAN

REACTIONS (2)
  - Vascular stent thrombosis [Unknown]
  - Dyspnoea [Unknown]
